FAERS Safety Report 7677049-9 (Version None)
Quarter: 2011Q3

REPORT INFORMATION
  Report Type: 
  Country: None (occurrence: None)
  Receive Date: 20110810
  Receipt Date: 20110810
  Transmission Date: 20111222
  Serious: Yes (Hospitalization)
  Sender: FDA-Public Use
  Company Number: None

PATIENT
  Age: 22 Year
  Sex: Female
  Weight: 90.5 kg

DRUGS (2)
  1. OXYCODONE HCL [Suspect]
     Indication: PAIN
     Dosage: 40 MG BID PO
     Route: 048
     Dates: start: 20110429
  2. DIAZEPAM [Suspect]
     Indication: MUSCLE SPASMS
     Dosage: 5-10 MG TID PO
     Route: 048
     Dates: start: 20110714

REACTIONS (2)
  - SEDATION [None]
  - CONFUSIONAL STATE [None]
